FAERS Safety Report 5824154-5 (Version None)
Quarter: 2008Q3

REPORT INFORMATION
  Report Type: 
  Country: None (occurrence: None)
  Receive Date: 20080728
  Receipt Date: 20080720
  Transmission Date: 20090109
  Serious: No
  Sender: FDA-Public Use
  Company Number: SA-NOVOPROD-277449

PATIENT
  Age: 11 Year
  Sex: Male
  Weight: 42 kg

DRUGS (1)
  1. NOVOSEVEN [Suspect]
     Indication: FACTOR VII DEFICIENCY
     Dosage: 1.2 MG, 3 TIMES PR. WEEK
     Route: 042
     Dates: start: 20080702, end: 20080709

REACTIONS (2)
  - ABDOMINAL PAIN [None]
  - MIGRAINE [None]
